FAERS Safety Report 18339091 (Version 1)
Quarter: 2020Q3

REPORT INFORMATION
  Report Type: Spontaneous
  Country: US (occurrence: US)
  Receive Date: 20200930
  Receipt Date: 20200930
  Transmission Date: 20201103
  Serious: Yes (Hospitalization)
  Sender: FDA-Public Use
  Company Number: None

PATIENT
  Age: 80 Year
  Sex: Male
  Weight: 64 kg

DRUGS (1)
  1. TROSPIUM (TROSPIUM CL 20MG TAB) [Suspect]
     Active Substance: TROSPIUM CHLORIDE
     Indication: NOCTURIA
     Route: 048
     Dates: start: 20200717, end: 20200727

REACTIONS (1)
  - Urinary retention [None]

NARRATIVE: CASE EVENT DATE: 20200727
